FAERS Safety Report 8901690 (Version 1)
Quarter: 2012Q4

REPORT INFORMATION
  Report Type: Spontaneous
  Country: DK (occurrence: None)
  Receive Date: 20121101
  Receipt Date: 20121101
  Transmission Date: 20130627
  Serious: Yes (Hospitalization)
  Sender: FDA-Public Use
  Company Number: ALLP20120028

PATIENT
  Age: 93 Year
  Sex: Female

DRUGS (9)
  1. ALLOPURINOL 100 [Suspect]
     Indication: HYPERURICAEMIC ARTHRITIS
     Route: 048
     Dates: start: 2008, end: 20121005
  2. BURINEX [Suspect]
     Indication: DIURETIC EFFECT
     Route: 048
     Dates: start: 2007
  3. ADALAT (NIFEDIPIN) [Concomitant]
  4. SPARKAL (AMILORIDHYDROCHLORID DIHYDRAT, VANDFRIT) HYDROCHLORTHIAZID, [Concomitant]
  5. KALEORID (KALIUMCHLORID) [Concomitant]
  6. BETOLVEX (CYANOCOBALAMIN, CYANOCOBALAMIN-TANNIN-KOMPLEX) [Concomitant]
  7. CALCIUM [Concomitant]
  8. PROLIA (DENOSUMAB) [Concomitant]
  9. AMLODIPIN ^ACTAVIS^ (AMLODIPINMESILATMONOHYDRAT) [Concomitant]

REACTIONS (5)
  - Renal impairment [None]
  - Dizziness [None]
  - Dehydration [None]
  - Fall [None]
  - Vomiting [None]
